FAERS Safety Report 4641277-7 (Version None)
Quarter: 2005Q2

REPORT INFORMATION
  Report Type: 
  Country: None (occurrence: None)
  Receive Date: 20050420
  Receipt Date: 20050420
  Transmission Date: 20051028
  Serious: Yes (Hospitalization)
  Sender: FDA-Public Use
  Company Number: None

PATIENT
  Age: 69 Year
  Sex: Male
  Weight: 57.9 kg

DRUGS (8)
  1. METFORMIN HCL [Suspect]
     Indication: DIABETES MELLITUS
     Dosage: 500 MG BID PO   PRIOR TO ADM
     Route: 048
  2. GLYBURIDE 5MG Q DAY [Suspect]
     Dosage: 5MG Q DAY PO PRIOR TO ADMISSION
     Route: 048
  3. PHOSLO [Concomitant]
  4. FELODIPINE [Concomitant]
  5. METOPROLOL TARTRATE [Concomitant]
  6. PREVACID [Concomitant]
  7. PREDNISONE [Concomitant]
  8. FLUCONAZOLE [Concomitant]

REACTIONS (5)
  - BLOOD GLUCOSE DECREASED [None]
  - LOSS OF CONSCIOUSNESS [None]
  - MENTAL STATUS CHANGES [None]
  - PNEUMONIA [None]
  - TACHYCARDIA [None]
